FAERS Safety Report 19198813 (Version 4)
Quarter: 2021Q3

REPORT INFORMATION
  Report Type: Report from Study
  Country: JP (occurrence: JP)
  Receive Date: 20210430
  Receipt Date: 20210806
  Transmission Date: 20211014
  Serious: Yes (Hospitalization, Other)
  Sender: FDA-Public Use
  Company Number: NVSJ2021JP005506

PATIENT
  Age: 57 Year
  Sex: Male

DRUGS (9)
  1. REVOLADE TAB [Suspect]
     Active Substance: ELTROMBOPAG OLAMINE
     Dosage: 100 MG
     Route: 048
     Dates: start: 20200326, end: 20210316
  2. NEORAL [Suspect]
     Active Substance: CYCLOSPORINE
     Dosage: 150 MG
     Route: 048
     Dates: start: 20200507
  3. REVOLADE TAB [Suspect]
     Active Substance: ELTROMBOPAG OLAMINE
     Indication: APLASTIC ANAEMIA
     Dosage: 25 MG
     Route: 048
     Dates: start: 20200226, end: 20200303
  4. REVOLADE TAB [Suspect]
     Active Substance: ELTROMBOPAG OLAMINE
     Dosage: 75 MG
     Route: 048
     Dates: start: 20200312, end: 20200325
  5. NEORAL [Suspect]
     Active Substance: CYCLOSPORINE
     Indication: PRODUCT USED FOR UNKNOWN INDICATION
     Dosage: 200 MG
     Route: 048
     Dates: start: 20200226, end: 20200506
  6. REVOLADE TAB [Suspect]
     Active Substance: ELTROMBOPAG OLAMINE
     Dosage: 50 MG
     Route: 048
     Dates: start: 20200304, end: 20200311
  7. PRIMOBOLAN [Concomitant]
     Active Substance: METHENOLONE
     Dosage: 10 MG
     Route: 048
     Dates: start: 20200430, end: 20200527
  8. PRIMOBOLAN [Concomitant]
     Active Substance: METHENOLONE
     Indication: APLASTIC ANAEMIA
     Dosage: 15 MG
     Route: 048
     Dates: start: 20200326, end: 20200429
  9. PRIMOBOLAN [Concomitant]
     Active Substance: METHENOLONE
     Dosage: 5 MG
     Route: 048
     Dates: start: 20200528, end: 20200611

REACTIONS (4)
  - COVID-19 [Recovered/Resolved]
  - Haemoglobin decreased [Unknown]
  - Hypertension [Not Recovered/Not Resolved]
  - Neutrophil count decreased [Unknown]

NARRATIVE: CASE EVENT DATE: 20200723
